FAERS Safety Report 6034789-5 (Version None)
Quarter: 2009Q1

REPORT INFORMATION
  Report Type: 
  Country: None (occurrence: None)
  Receive Date: 20090108
  Receipt Date: 20090102
  Transmission Date: 20090719
  Serious: No
  Sender: FDA-Public Use
  Company Number: US025244

PATIENT
  Sex: Female

DRUGS (3)
  1. FENTORA [Suspect]
     Indication: HERPES ZOSTER
     Dosage: 100 UG BUCCAL
     Route: 002
     Dates: start: 20081120
  2. FENTORA [Suspect]
     Indication: PAIN
     Dosage: 100 UG BUCCAL
     Route: 002
     Dates: start: 20081120
  3. LORTAB [Concomitant]

REACTIONS (1)
  - DRUG PRESCRIBING ERROR [None]
